FAERS Safety Report 9195355 (Version 1)
Quarter: 2013Q1

REPORT INFORMATION
  Report Type: Spontaneous
  Country: None (occurrence: US)
  Receive Date: 20130328
  Receipt Date: 20130328
  Transmission Date: 20140127
  Serious: No
  Sender: FDA-Public Use
  Company Number: US-ALLERGAN-1216422US

PATIENT
  Sex: Female

DRUGS (1)
  1. LUMIGAN [Suspect]
     Indication: GROWTH OF EYELASHES
     Dosage: UNK UNK, SINGLE
     Route: 061
     Dates: start: 20121123

REACTIONS (4)
  - Off label use [Unknown]
  - Wrong technique in drug usage process [Unknown]
  - Erythema of eyelid [Not Recovered/Not Resolved]
  - Erythema [Not Recovered/Not Resolved]
